FAERS Safety Report 21000704 (Version 2)
Quarter: 2023Q1

REPORT INFORMATION
  Report Type: Spontaneous
  Country: JP (occurrence: JP)
  Receive Date: 20220623
  Receipt Date: 20230130
  Transmission Date: 20230417
  Serious: Yes (Death, Other)
  Sender: FDA-Public Use
  Company Number: JP-CHUGAI-2022023488

PATIENT
  Age: 73 Year
  Sex: Female

DRUGS (2)
  1. ROZLYTREK [Suspect]
     Active Substance: ENTRECTINIB
     Indication: Neoplasm malignant
     Route: 048
     Dates: start: 20220407
  2. ROZLYTREK [Suspect]
     Active Substance: ENTRECTINIB
     Dosage: UNK
     Route: 048

REACTIONS (2)
  - Death [Fatal]
  - Cardiac failure [Recovering/Resolving]
